FAERS Safety Report 4583335-1 (Version None)
Quarter: 2005Q1

REPORT INFORMATION
  Report Type: 
  Country: None (occurrence: None)
  Receive Date: 20050125
  Receipt Date: 20040901
  Transmission Date: 20050727
  Serious: No
  Sender: FDA-Public Use
  Company Number: USA040157284

PATIENT
  Age: 76 Year
  Sex: Female
  Weight: 64 kg

DRUGS (4)
  1. FORTEO [Suspect]
     Indication: BONE LESION
     Dates: start: 20030101
  2. CALCIUM GLUCONATE [Concomitant]
  3. FOSAMAX [Concomitant]
  4. DYAZIDE [Concomitant]

REACTIONS (9)
  - ARTHRALGIA [None]
  - ASTHENIA [None]
  - BACK PAIN [None]
  - BONE PAIN [None]
  - DYSPNOEA [None]
  - FATIGUE [None]
  - GROWING PAINS [None]
  - HEART RATE INCREASED [None]
  - MUSCLE SPASMS [None]
